FAERS Safety Report 4927830-1 (Version None)
Quarter: 2006Q1

REPORT INFORMATION
  Report Type: 
  Country: None (occurrence: None)
  Receive Date: 20060228
  Receipt Date: 20060215
  Transmission Date: 20060701
  Serious: Yes (Hospitalization)
  Sender: FDA-Public Use
  Company Number: US-KINGPHARMUSA00001-K200600220

PATIENT
  Age: 50 Year
  Sex: Male

DRUGS (5)
  1. ALTACE [Suspect]
     Route: 048
     Dates: start: 20051121, end: 20051203
  2. LOVENOX [Concomitant]
     Dosage: .4 ML, QD
     Route: 058
     Dates: start: 20051101, end: 20051128
  3. HEPARIN [Concomitant]
     Dates: start: 20051121
  4. PLAVIX [Suspect]
     Dosage: UNK, UNK
     Route: 048
     Dates: start: 20051129, end: 20051203
  5. LASILIX [Suspect]
     Dates: start: 20051121, end: 20051203

REACTIONS (3)
  - SYNCOPE [None]
  - THROMBOCYTOPENIA [None]
  - VENTRICULAR TACHYCARDIA [None]
